FAERS Safety Report 4626749-3 (Version None)
Quarter: 2005Q1

REPORT INFORMATION
  Report Type: 
  Country: None (occurrence: None)
  Receive Date: 20050331
  Receipt Date: 20050318
  Transmission Date: 20050727
  Serious: Yes (Hospitalization, Other)
  Sender: FDA-Public Use
  Company Number: HQWYE178718MAR05

PATIENT
  Age: 58 Year
  Sex: Male

DRUGS (5)
  1. CORDARONE [Suspect]
     Indication: ATRIAL FIBRILLATION
     Dosage: 200 MG 2X PER 1 DAY ORAL
     Route: 048
     Dates: start: 20040902, end: 20041012
  2. CORDARONE [Suspect]
     Indication: ATRIAL FLUTTER
     Dosage: 200 MG 2X PER 1 DAY ORAL
     Route: 048
     Dates: start: 20040902, end: 20041012
  3. COVERSUM (PERINDOPRIL) [Concomitant]
  4. TOREM (TORASEMIDE) [Concomitant]
  5. MARCUMAR [Concomitant]

REACTIONS (5)
  - ATRIAL FIBRILLATION [None]
  - AUTOIMMUNE THYROIDITIS [None]
  - CARDIAC FLUTTER [None]
  - DRUG INEFFECTIVE [None]
  - HYPERTHYROIDISM [None]
